FAERS Safety Report 7601874 (Version 2)
Quarter: 2013Q2

REPORT INFORMATION
  Report Type: Spontaneous
  Country: US (occurrence: None)
  Receive Date: 20100823
  Receipt Date: 20120621
  Transmission Date: 20140414
  Serious: Yes (Hospitalization)
  Sender: FDA-Public Use
  Company Number: 013822

PATIENT
  Sex: Female

DRUGS (18)
  1. CIMZIA [Suspect]
     Dosage: (START DATE: FALL OF LAST YEAR SUBCUTANEOUS)
     Route: 058
     Dates: start: 2009
  2. FOLIC ACID [Concomitant]
  3. TRAMADOL [Concomitant]
  4. ACETAMINOPHEN [Concomitant]
  5. METHOTREXATE [Concomitant]
  6. CLONAZEPAM [Concomitant]
  7. AMITRIPTYLENE [Concomitant]
  8. CYANOCOBALMIN [Concomitant]
  9. CITALOPRAM [Concomitant]
  10. FLUTICASONE [Concomitant]
  11. LEVOFLOXACIN [Concomitant]
  12. LOPERAMIDE [Concomitant]
  13. OPIUM TINCTURE [Concomitant]
  14. PREDNISONE [Concomitant]
  15. PAREGORIC [Concomitant]
  16. TORADOL [Concomitant]
  17. TOPIRAMATE [Concomitant]
  18. NYSTATIN [Concomitant]

REACTIONS (1)
  - ABDOMINAL PAIN [None]
